FAERS Safety Report 14310615 (Version 1)
Quarter: 2017Q4

REPORT INFORMATION
  Report Type: Spontaneous
  Country: FR (occurrence: FR)
  Receive Date: 20171220
  Receipt Date: 20171220
  Transmission Date: 20180321
  Serious: Yes (Other)
  Sender: FDA-Public Use
  Company Number: FR-MYLANLABS-2017M1079690

PATIENT

DRUGS (2)
  1. URSODEOXYCHOLIC ACID [Suspect]
     Active Substance: URSODIOL
     Indication: BILIARY CIRRHOSIS PRIMARY
  2. OBETICHOLIC ACID [Suspect]
     Active Substance: OBETICHOLIC ACID
     Indication: BILIARY CIRRHOSIS PRIMARY
     Dosage: 3 GROUPS IN STUDY; RANGING FROM 0 MG TO 10 MG OBETICHOLIC

REACTIONS (6)
  - Cholestatic pruritus [Unknown]
  - Therapy non-responder [Unknown]
  - Low density lipoprotein increased [Unknown]
  - Blood bilirubin abnormal [Unknown]
  - Blood alkaline phosphatase increased [Unknown]
  - High density lipoprotein decreased [Unknown]
